FAERS Safety Report 8556800-X (Version None)
Quarter: 2012Q3

REPORT INFORMATION
  Report Type: 
  Country: None (occurrence: None)
  Receive Date: 20120726
  Receipt Date: 20120726
  Transmission Date: 20120928
  Serious: Yes (Hospitalization)
  Sender: FDA-Public Use
  Company Number: None

PATIENT
  Sex: Female
  Weight: 58.1 kg

DRUGS (1)
  1. CEFTRIAXONE [Suspect]
     Dosage: 2 GRAMS, Q12HR, IV
     Route: 042

REACTIONS (2)
  - PYREXIA [None]
  - NEUTROPENIA [None]
